FAERS Safety Report 13579293 (Version 1)
Quarter: 2017Q2

REPORT INFORMATION
  Report Type: Spontaneous
  Country: BR (occurrence: BR)
  Receive Date: 20170525
  Receipt Date: 20170525
  Transmission Date: 20170830
  Serious: Yes (Other)
  Sender: FDA-Public Use
  Company Number: BR-ABBVIE-17K-020-1985523-00

PATIENT
  Sex: Female
  Weight: 61 kg

DRUGS (2)
  1. HUMIRA [Suspect]
     Active Substance: ADALIMUMAB
     Indication: PRODUCT USED FOR UNKNOWN INDICATION
     Route: 058
  2. CALCIUM+VITAMIN D3 [Concomitant]
     Active Substance: CALCIUM\CHOLECALCIFEROL
     Indication: PRODUCT USED FOR UNKNOWN INDICATION
     Dosage: FORM STRENGTH: 500 MG CALCIUM + 200 IU VITAMIN D3

REACTIONS (11)
  - Pain in extremity [Unknown]
  - Hypertension [Unknown]
  - Immunodeficiency [Unknown]
  - Rheumatic disorder [Unknown]
  - Pain [Unknown]
  - Phlebitis [Unknown]
  - Systemic lupus erythematosus [Unknown]
  - Poor peripheral circulation [Unknown]
  - Arthralgia [Unknown]
  - Blood pressure abnormal [Unknown]
  - Myocardial infarction [Unknown]
